FAERS Safety Report 10718310 (Version 3)
Quarter: 2015Q2

REPORT INFORMATION
  Report Type: Spontaneous
  Country: US (occurrence: US)
  Receive Date: 20150118
  Receipt Date: 20150505
  Transmission Date: 20150821
  Serious: No
  Sender: FDA-Public Use
  Company Number: US-ASTRAZENECA-2014SE98065

PATIENT
  Age: 783 Month
  Sex: Female
  Weight: 61.2 kg

DRUGS (4)
  1. SYMBICORT [Suspect]
     Active Substance: BUDESONIDE\FORMOTEROL FUMARATE DIHYDRATE
     Indication: NERVE INJURY
     Dosage: 160/4.5MCG, 2 PUFFS BID
     Route: 055
  2. ALBUTEROL. [Concomitant]
     Active Substance: ALBUTEROL
     Dosage: AS REQUIRED
     Route: 055
  3. SYMBICORT [Suspect]
     Active Substance: BUDESONIDE\FORMOTEROL FUMARATE DIHYDRATE
     Indication: NERVE INJURY
     Dosage: 1 PUFF, TWO TIMES A DAY
     Route: 055
     Dates: start: 2014
  4. PULMICORT TURBUHALER [Suspect]
     Active Substance: BUDESONIDE
     Indication: NERVE INJURY
     Dosage: TWO TIMES A DAY
     Route: 055
     Dates: start: 201404

REACTIONS (4)
  - Product use issue [Unknown]
  - Intentional product use issue [Not Recovered/Not Resolved]
  - Product use issue [Unknown]
  - Intentional product misuse [Not Recovered/Not Resolved]

NARRATIVE: CASE EVENT DATE: 201404
